FAERS Safety Report 14207475 (Version 1)
Quarter: 2017Q4

REPORT INFORMATION
  Report Type: Spontaneous
  Country: US (occurrence: None)
  Receive Date: 20171120
  Receipt Date: 20171120
  Transmission Date: 20180321
  Serious: No
  Sender: FDA-Public Use
  Company Number: None

PATIENT
  Sex: Male

DRUGS (3)
  1. XGEVA [Suspect]
     Active Substance: DENOSUMAB
     Route: 058
  2. FIRMAGON [Suspect]
     Active Substance: DEGARELIX ACETATE
     Indication: PROSTATE CANCER
     Route: 058
  3. FIRMAGON [Suspect]
     Active Substance: DEGARELIX ACETATE
     Indication: METASTASES TO BONE
     Route: 058

REACTIONS (2)
  - Full blood count decreased [None]
  - Malaise [None]
